FAERS Safety Report 7046845-3 (Version None)
Quarter: 2010Q3

REPORT INFORMATION
  Report Type: 
  Country: None (occurrence: None)
  Receive Date: 20100902
  Receipt Date: 20091002
  Transmission Date: 20110219
  Serious: Yes (Other)
  Sender: FDA-Public Use
  Company Number: 09-012

PATIENT

DRUGS (1)
  1. PEANUT SCRATCH: 1:20 [Suspect]
     Dosage: OFFICE PREPARED MIX 1:1000

REACTIONS (1)
  - SKIN TEST POSITIVE [None]
